FAERS Safety Report 10051485 (Version 1)
Quarter: 2014Q1

REPORT INFORMATION
  Report Type: Spontaneous
  Country: US (occurrence: None)
  Receive Date: 20140328
  Receipt Date: 20140328
  Transmission Date: 20141002
  Serious: Yes (Disabling, Other)
  Sender: FDA-Public Use
  Company Number: 2014-US-003211

PATIENT
  Age: 39 Year
  Sex: Female

DRUGS (1)
  1. XYREM [Suspect]
     Indication: NARCOLEPSY
     Route: 048

REACTIONS (8)
  - Malaise [None]
  - Bedridden [None]
  - Brain malformation [None]
  - Fibromyalgia [None]
  - Narcolepsy [None]
  - Condition aggravated [None]
  - Depressed level of consciousness [None]
  - Memory impairment [None]
